FAERS Safety Report 6160385-5 (Version None)
Quarter: 2009Q2

REPORT INFORMATION
  Report Type: 
  Country: None (occurrence: None)
  Receive Date: 20090420
  Receipt Date: 20090413
  Transmission Date: 20091009
  Serious: Yes (Death)
  Sender: FDA-Public Use
  Company Number: TR-ELI_LILLY_AND_COMPANY-TR200904003033

PATIENT
  Age: 72 Year
  Sex: Female

DRUGS (3)
  1. HUMALOG MIX 75/25 [Suspect]
     Indication: DIABETES MELLITUS
     Dosage: 50 IU, DAILY (1/D)
     Route: 058
     Dates: start: 20090301
  2. GLUCOPHAGE [Concomitant]
     Indication: DIABETES MELLITUS
     Dates: start: 19990101
  3. NOVONORM [Concomitant]
     Indication: DIABETES MELLITUS
     Dates: start: 19990101

REACTIONS (1)
  - MYOCARDIAL INFARCTION [None]
